FAERS Safety Report 23064797 (Version 2)
Quarter: 2023Q4

REPORT INFORMATION
  Report Type: Spontaneous
  Country: AT (occurrence: AT)
  Receive Date: 20231013
  Receipt Date: 20231108
  Transmission Date: 20240110
  Serious: Yes (Other)
  Sender: FDA-Public Use
  Company Number: AT-BAXTER-2023BAX032683

PATIENT
  Age: 83 Year
  Sex: Female
  Weight: 52 kg

DRUGS (20)
  1. DOXORUBICIN [Suspect]
     Active Substance: DOXORUBICIN
     Indication: Diffuse large B-cell lymphoma stage III
     Dosage: UNK, START DATE: OCT-2020, AND END DATE: JAN-2021, AS A PART OF R-MINI-CHOP REGIMEN, 6 X CYCLE
     Route: 065
  2. DOXORUBICIN [Suspect]
     Active Substance: DOXORUBICIN
     Indication: Hypercholesterolaemia
  3. DOXORUBICIN [Suspect]
     Active Substance: DOXORUBICIN
     Indication: Osteoporosis
  4. DOXORUBICIN [Suspect]
     Active Substance: DOXORUBICIN
     Indication: Macular degeneration
  5. CYCLOPHOSPHAMIDE [Suspect]
     Active Substance: CYCLOPHOSPHAMIDE
     Indication: Diffuse large B-cell lymphoma stage III
     Dosage: UNK, START DATE: OCT-2020, AND END DATE: JAN-2021, AS A PART OF R-MINI-CHOP REGIMEN, 6 X CYCLE
     Route: 065
  6. CYCLOPHOSPHAMIDE [Suspect]
     Active Substance: CYCLOPHOSPHAMIDE
     Indication: Hypercholesterolaemia
  7. CYCLOPHOSPHAMIDE [Suspect]
     Active Substance: CYCLOPHOSPHAMIDE
     Indication: Osteoporosis
  8. CYCLOPHOSPHAMIDE [Suspect]
     Active Substance: CYCLOPHOSPHAMIDE
     Indication: Macular degeneration
  9. RITUXIMAB [Suspect]
     Active Substance: RITUXIMAB
     Indication: Diffuse large B-cell lymphoma stage III
     Dosage: UNK, START DATE: OCT-2020, AND END DATE: JAN-2021, AS A PART OF R-MINI-CHOP REGIMEN, 6 X CYCLE
     Route: 065
  10. RITUXIMAB [Suspect]
     Active Substance: RITUXIMAB
     Indication: Hypercholesterolaemia
  11. RITUXIMAB [Suspect]
     Active Substance: RITUXIMAB
     Indication: Osteoporosis
  12. RITUXIMAB [Suspect]
     Active Substance: RITUXIMAB
     Indication: Macular degeneration
  13. VINCRISTINE [Suspect]
     Active Substance: VINCRISTINE
     Indication: Diffuse large B-cell lymphoma stage III
     Dosage: UNK, START DATE: OCT-2020, AND END DATE: JAN-2021, AS A PART OF R-MINI-CHOP REGIMEN, 6 X CYCLE
     Route: 065
  14. VINCRISTINE [Suspect]
     Active Substance: VINCRISTINE
     Indication: Hypercholesterolaemia
  15. VINCRISTINE [Suspect]
     Active Substance: VINCRISTINE
     Indication: Osteoporosis
  16. VINCRISTINE [Suspect]
     Active Substance: VINCRISTINE
     Indication: Macular degeneration
  17. PREDNISONE [Suspect]
     Active Substance: PREDNISONE
     Indication: Diffuse large B-cell lymphoma stage III
     Dosage: UNK, START DATE: OCT-2020, AND END DATE: JAN-2021, AS A PART OF R-MINI-CHOP REGIMEN, 6 X CYCLE
     Route: 065
  18. PREDNISONE [Suspect]
     Active Substance: PREDNISONE
     Indication: Hypercholesterolaemia
  19. PREDNISONE [Suspect]
     Active Substance: PREDNISONE
     Indication: Osteoporosis
  20. PREDNISONE [Suspect]
     Active Substance: PREDNISONE
     Indication: Macular degeneration

REACTIONS (13)
  - Primary amyloidosis [Unknown]
  - Cytomegalovirus colitis [Unknown]
  - Eosinophilic colitis [Unknown]
  - Renal amyloidosis [Unknown]
  - Renal tubular atrophy [Unknown]
  - Renal cancer stage II [Unknown]
  - Nephrotic syndrome [Unknown]
  - Non-Hodgkin^s lymphoma [Unknown]
  - Pneumonia [Unknown]
  - Ulcer [Unknown]
  - Intestinal fibrosis [Unknown]
  - Disease recurrence [Unknown]
  - Herpes zoster [Unknown]
